FAERS Safety Report 21181936 (Version 3)
Quarter: 2022Q4

REPORT INFORMATION
  Report Type: Spontaneous
  Country: US (occurrence: US)
  Receive Date: 20220807
  Receipt Date: 20221208
  Transmission Date: 20230112
  Serious: No
  Sender: FDA-Public Use
  Company Number: US-SA-SAC20220804001330

PATIENT
  Age: 21 Year
  Sex: Female

DRUGS (3)
  1. DUPIXENT [Suspect]
     Active Substance: DUPILUMAB
     Indication: Dermatitis atopic
     Dosage: 600 MG, 1X
     Route: 058
     Dates: start: 20220727, end: 20220727
  2. DUPIXENT [Suspect]
     Active Substance: DUPILUMAB
     Indication: Xerosis
     Dosage: 300 MG, QOW
     Route: 058
     Dates: start: 202208
  3. DUPIXENT [Suspect]
     Active Substance: DUPILUMAB
     Indication: Dermatitis atopic

REACTIONS (6)
  - Contusion [Unknown]
  - Condition aggravated [Unknown]
  - Pain [Unknown]
  - Ecchymosis [Unknown]
  - Amnesia [Unknown]
  - Product use in unapproved indication [Unknown]

NARRATIVE: CASE EVENT DATE: 20220101
